FAERS Safety Report 16481356 (Version 1)
Quarter: 2019Q2

REPORT INFORMATION
  Report Type: Spontaneous
  Country: US (occurrence: US)
  Receive Date: 20190627
  Receipt Date: 20190627
  Transmission Date: 20190711
  Serious: No
  Sender: FDA-Public Use
  Company Number: US-GLAXOSMITHKLINE-US2019114683

PATIENT

DRUGS (1)
  1. VOLTAREN [Suspect]
     Active Substance: DICLOFENAC SODIUM
     Indication: CHEST INJURY
     Dosage: UNK, (3 DAYS)

REACTIONS (3)
  - Product administered at inappropriate site [Unknown]
  - Application site hypoaesthesia [Not Recovered/Not Resolved]
  - Product use in unapproved indication [Unknown]
